FAERS Safety Report 25967913 (Version 1)
Quarter: 2025Q4

REPORT INFORMATION
  Report Type: Spontaneous
  Country: US (occurrence: US)
  Receive Date: 20251028
  Receipt Date: 20251028
  Transmission Date: 20260117
  Serious: No
  Sender: STALLERGENES
  Company Number: US-STALCOR-2025-AER-02527

PATIENT
  Age: 9 Year
  Sex: Male

DRUGS (3)
  1. PALFORZIA [Suspect]
     Active Substance: PEANUT
     Indication: Food allergy
     Dosage: REACTIVE DOSE AT MAINTENANCE DOSE, 300MG LAST DISPENSED 25-JUL-2025
     Route: 048
  2. LORATADINE [Concomitant]
     Active Substance: LORATADINE
     Indication: Product used for unknown indication
  3. CHILDRENS ZYRTEC [Concomitant]
     Active Substance: CETIRIZINE HYDROCHLORIDE
     Indication: Product used for unknown indication

REACTIONS (4)
  - Ocular hyperaemia [Unknown]
  - Nausea [Unknown]
  - Vomiting [Unknown]
  - Sneezing [Unknown]

NARRATIVE: CASE EVENT DATE: 20250801
